FAERS Safety Report 18846396 (Version 1)
Quarter: 2021Q1

REPORT INFORMATION
  Report Type: Spontaneous
  Country: GB (occurrence: GB)
  Receive Date: 20210204
  Receipt Date: 20210204
  Transmission Date: 20210419
  Serious: Yes (Other)
  Sender: FDA-Public Use
  Company Number: GB-ACCORD-216364

PATIENT
  Age: 4 Year
  Sex: Male
  Weight: 19.5 kg

DRUGS (1)
  1. MONTELUKAST [Suspect]
     Active Substance: MONTELUKAST SODIUM
     Indication: ASTHMA
     Route: 048
     Dates: start: 20190919

REACTIONS (2)
  - Mood swings [Not Recovered/Not Resolved]
  - Aggression [Recovering/Resolving]

NARRATIVE: CASE EVENT DATE: 20190930
